FAERS Safety Report 8256330-9 (Version None)
Quarter: 2012Q2

REPORT INFORMATION
  Report Type: 
  Country: None (occurrence: None)
  Receive Date: 20120403
  Receipt Date: 20120328
  Transmission Date: 20120825
  Serious: Yes (Other)
  Sender: FDA-Public Use
  Company Number: TR-TEVA-327951ISR

PATIENT
  Age: 4 Year

DRUGS (5)
  1. VINCRISTINE [Concomitant]
     Indication: GLIOMA
     Dosage: INDUCTION: WEEKLY FOR 10 WEEKS. MAINTENANCE: WEEKLY FOR FIRST 3 WEEKS OF EACH CYCLE.
     Route: 040
  2. SODIUM CHLORIDE [Concomitant]
     Indication: FLUID REPLACEMENT
     Dosage: ADMINISTERED FOR 1 HOUR BEFORE CARBOPLATIN AND 2 HOURS AFTER CARBOPLATIN
     Route: 065
  3. CARBOPLATIN [Suspect]
     Indication: GLIOMA
     Dosage: OVER 60 MINUTES. INDUCTION: 4WK ON, 2WK REST, 4WK ON. MAINTENANCE: 4WK ON, 2WK REST.
     Route: 041
  4. COTRIM [Concomitant]
     Indication: ANTIFUNGAL PROPHYLAXIS
     Route: 065
  5. GRANISETRON [Concomitant]
     Indication: ANTIEMETIC SUPPORTIVE CARE
     Route: 042

REACTIONS (1)
  - HYPERSENSITIVITY [None]
